FAERS Safety Report 5198007-2 (Version None)
Quarter: 2007Q1

REPORT INFORMATION
  Report Type: 
  Country: None (occurrence: None)
  Receive Date: 20070104
  Receipt Date: 20061227
  Transmission Date: 20070707
  Serious: Yes (Other)
  Sender: FDA-Public Use
  Company Number: DE-JNJFOC-20061202812

PATIENT
  Weight: 55 kg

DRUGS (1)
  1. IMODIUM [Suspect]
     Indication: LACTOSE INTOLERANCE
     Dosage: 20-40 CAPSULES
     Route: 048

REACTIONS (3)
  - DRUG ABUSER [None]
  - DRUG WITHDRAWAL SYNDROME [None]
  - INTENTIONAL OVERDOSE [None]
